FAERS Safety Report 12458108 (Version 1)
Quarter: 2016Q2

REPORT INFORMATION
  Report Type: Spontaneous
  Country: CA (occurrence: CA)
  Receive Date: 20160613
  Receipt Date: 20160613
  Transmission Date: 20160815
  Serious: Yes (Disabling)
  Sender: FDA-Public Use
  Company Number: CA-UCBSA-2016021475

PATIENT
  Sex: Female

DRUGS (1)
  1. KEPPRA [Suspect]
     Active Substance: LEVETIRACETAM
     Indication: PRODUCT USED FOR UNKNOWN INDICATION
     Dosage: UNK

REACTIONS (13)
  - Hypoaesthesia [Unknown]
  - Mental impairment [Unknown]
  - Communication disorder [Unknown]
  - Mental disability [Unknown]
  - Educational problem [Unknown]
  - Feelings of worthlessness [Unknown]
  - Loss of libido [Unknown]
  - Emotional poverty [Unknown]
  - Learning disability [Unknown]
  - Amnesia [Unknown]
  - Apathy [Unknown]
  - Depression [Unknown]
  - Feeling abnormal [Unknown]
